FAERS Safety Report 23042578 (Version 2)
Quarter: 2023Q4

REPORT INFORMATION
  Report Type: Spontaneous
  Country: US (occurrence: US)
  Receive Date: 20231009
  Receipt Date: 20231012
  Transmission Date: 20240109
  Serious: No
  Sender: FDA-Public Use
  Company Number: US-SANOFI-01786826

PATIENT
  Age: 85 Year
  Sex: Female

DRUGS (1)
  1. LANTUS SOLOSTAR [Suspect]
     Active Substance: INSULIN GLARGINE
     Indication: Type 2 diabetes mellitus
     Dosage: 30 UNITS 1X

REACTIONS (4)
  - Injection site haemorrhage [Unknown]
  - Injection site bruising [Unknown]
  - Needle issue [Unknown]
  - Device use issue [Unknown]

NARRATIVE: CASE EVENT DATE: 20230929
